FAERS Safety Report 6729052-0 (Version None)
Quarter: 2010Q2

REPORT INFORMATION
  Report Type: 
  Country: None (occurrence: None)
  Receive Date: 20100517
  Receipt Date: 20100330
  Transmission Date: 20101027
  Serious: No
  Sender: FDA-Public Use
  Company Number: US-ABBOTT-10P-163-0635376-00

PATIENT
  Sex: Male
  Weight: 81.72 kg

DRUGS (5)
  1. SIMCOR [Suspect]
     Indication: DYSLIPIDAEMIA
     Dosage: 500MG/20MG AT BED TIME
     Route: 048
     Dates: start: 20100323
  2. SIMCOR [Suspect]
     Indication: FAMILIAL RISK FACTOR
  3. ASPIRIN [Concomitant]
     Indication: DRUG USE FOR UNKNOWN INDICATION
     Route: 048
  4. VITAMIN TAB [Concomitant]
     Indication: DRUG USE FOR UNKNOWN INDICATION
     Route: 048
  5. FISH OIL [Concomitant]
     Indication: DRUG USE FOR UNKNOWN INDICATION
     Route: 048

REACTIONS (2)
  - NASOPHARYNGITIS [None]
  - PAIN [None]
